FAERS Safety Report 24556019 (Version 2)
Quarter: 2024Q4

REPORT INFORMATION
  Report Type: Spontaneous
  Country: US (occurrence: US)
  Receive Date: 20241028
  Receipt Date: 20241106
  Transmission Date: 20250114
  Serious: Yes (Other)
  Sender: ADVANZ PHARMA
  Company Number: US-MLMSERVICE-20241010-PI223135-00271-1

PATIENT

DRUGS (9)
  1. HYDROXYCHLOROQUINE [Suspect]
     Active Substance: HYDROXYCHLOROQUINE
     Indication: Systemic lupus erythematosus
     Dosage: UNK
  2. PREDNISONE [Suspect]
     Active Substance: PREDNISONE
     Indication: Systemic lupus erythematosus
     Dosage: 5 MG, QD
  3. PREDNISONE [Suspect]
     Active Substance: PREDNISONE
     Indication: Rash
     Dosage: 30 MG, QD DOSE INCREASED/ESCALATING IMMUNOSUPPRESSION
  4. PREDNISONE [Suspect]
     Active Substance: PREDNISONE
     Dosage: 20 MG, QD,INCREASED ON DAY 35
  5. PREDNISONE [Suspect]
     Active Substance: PREDNISONE
     Dosage: 30 MG, BID (INCREASED AGAIN ON DAY 51)
  6. AZATHIOPRINE [Suspect]
     Active Substance: AZATHIOPRINE
     Indication: Systemic lupus erythematosus
     Dosage: UNK
  7. AZATHIOPRINE [Suspect]
     Active Substance: AZATHIOPRINE
     Dosage: DOSE INCREASED
  8. METHOTREXATE [Suspect]
     Active Substance: METHOTREXATE
     Indication: Systemic lupus erythematosus
     Dosage: UNK
  9. METHOTREXATE [Suspect]
     Active Substance: METHOTREXATE
     Dosage: DOSE INCREASED

REACTIONS (14)
  - Pulmonary fibrosis [Unknown]
  - Atelectasis [Unknown]
  - Cellulitis [Unknown]
  - Cutaneous tuberculosis [Unknown]
  - Eczema [Unknown]
  - Acanthosis [Unknown]
  - Skin mass [Unknown]
  - Skin oedema [Unknown]
  - Skin plaque [Unknown]
  - Erythema [Unknown]
  - Skin hyperpigmentation [Unknown]
  - Skin hypertrophy [Unknown]
  - Subcutaneous abscess [Unknown]
  - Condition aggravated [Unknown]
